FAERS Safety Report 13251950 (Version 2)
Quarter: 2017Q1

REPORT INFORMATION
  Report Type: Spontaneous
  Country: CO (occurrence: CO)
  Receive Date: 20170220
  Receipt Date: 20170221
  Transmission Date: 20170428
  Serious: Yes (Other)
  Sender: FDA-Public Use
  Company Number: CO-BAYER-2017-031037

PATIENT
  Sex: Female

DRUGS (1)
  1. MIRENA [Suspect]
     Active Substance: LEVONORGESTREL
     Dosage: 20 MCG/24HR, CONT
     Route: 015
     Dates: start: 2014

REACTIONS (5)
  - Nipple exudate bloody [Unknown]
  - Device expulsion [Recovered/Resolved]
  - Benign breast neoplasm [Unknown]
  - Device breakage [Unknown]
  - Complication of device removal [Unknown]
